FAERS Safety Report 5271868-4 (Version None)
Quarter: 2007Q1

REPORT INFORMATION
  Report Type: 
  Country: None (occurrence: None)
  Receive Date: 20070316
  Receipt Date: 20070305
  Transmission Date: 20070707
  Serious: Yes (Hospitalization)
  Sender: FDA-Public Use
  Company Number: ST-2007-009553

PATIENT
  Age: 80 Year
  Sex: Male
  Weight: 63 kg

DRUGS (13)
  1. OLMETEC [Suspect]
     Indication: HYPERTENSION
     Dosage: 20 MG DAILY PO
     Route: 048
  2. ZITHROMAC [Suspect]
     Dosage: 250 MG DAILY PO
     Route: 048
     Dates: start: 20070122, end: 20070124
  3. LYSOZYME [Suspect]
     Dates: start: 20070122
  4. LORFENAMIN [Suspect]
     Dosage: 250 MG DAILY PO
     Route: 048
     Dates: start: 20070122, end: 20070124
  5. CLINDAMYCIN [Suspect]
     Dosage: 600 MG DAILY IV
     Route: 042
     Dates: start: 20070122
  6. TICLOPIDINE HCL [Concomitant]
  7. KETOPROFEN [Concomitant]
  8. GASCON [Concomitant]
  9. EPADEL [Concomitant]
  10. CYANOCOBALAMIN [Concomitant]
  11. ADETPHOS [Concomitant]
  12. MUCOSTA [Concomitant]
  13. PODONIN S [Concomitant]

REACTIONS (2)
  - LIVER DISORDER [None]
  - STEVENS-JOHNSON SYNDROME [None]
